FAERS Safety Report 13654947 (Version 1)
Quarter: 2017Q2

REPORT INFORMATION
  Report Type: Spontaneous
  Country: PL (occurrence: PL)
  Receive Date: 20170615
  Receipt Date: 20170615
  Transmission Date: 20170830
  Serious: Yes (Other)
  Sender: FDA-Public Use
  Company Number: PL-CORDEN PHARMA LATINA S.P.A.-PL-2017COR000147

PATIENT
  Age: 20 Year
  Sex: Female

DRUGS (5)
  1. DOXORUBICIN [Suspect]
     Active Substance: DOXORUBICIN
     Indication: ASTROCYTOMA MALIGNANT
     Dosage: UNK
  2. CISPLATIN. [Suspect]
     Active Substance: CISPLATIN
     Indication: ASTROCYTOMA MALIGNANT
     Dosage: UNK
  3. TEMODAL [Suspect]
     Active Substance: TEMOZOLOMIDE
     Indication: ASTROCYTOMA MALIGNANT
     Dosage: UNK
  4. ETOPOSIDE. [Suspect]
     Active Substance: ETOPOSIDE
     Indication: ASTROCYTOMA MALIGNANT
     Dosage: UNK, CUMULATIVE DOSE OF 1.35 G/M2
  5. IFOSFAMIDE. [Suspect]
     Active Substance: IFOSFAMIDE
     Indication: ASTROCYTOMA MALIGNANT
     Dosage: UNK, CUMULATIVE DOSE OF 36.0G/M2

REACTIONS (1)
  - Acute myeloid leukaemia [Recovered/Resolved]
